FAERS Safety Report 9988020 (Version 1)
Quarter: 2014Q1

REPORT INFORMATION
  Report Type: Report from Study
  Country: US (occurrence: US)
  Receive Date: 20140307
  Receipt Date: 20140307
  Transmission Date: 20141002
  Serious: Yes (Hospitalization)
  Sender: FDA-Public Use
  Company Number: US-ABBVIE-14P-163-1208916-00

PATIENT
  Age: 52 Year
  Sex: Female

DRUGS (12)
  1. HUMIRA [Suspect]
     Indication: CROHN^S DISEASE
     Route: 058
     Dates: start: 20130225, end: 20140224
  2. LOVASTATIN [Concomitant]
     Indication: BLOOD CHOLESTEROL ABNORMAL
     Dosage: AT BEDTIME
  3. TRAZODONE [Concomitant]
     Indication: INSOMNIA
     Dosage: AT 4 PM
  4. REQUIP [Concomitant]
     Indication: RESTLESS LEGS SYNDROME
  5. KLONOPIN [Concomitant]
     Indication: ANXIETY
  6. PROTONIX [Concomitant]
     Indication: GASTROOESOPHAGEAL REFLUX DISEASE
  7. ATROVENT [Concomitant]
     Indication: ASTHMA
     Route: 055
  8. SINGULAIR [Concomitant]
     Indication: SEASONAL ALLERGY
  9. QVAR [Concomitant]
     Indication: ASTHMA
     Route: 055
  10. EFFEXOR [Concomitant]
     Indication: PRODUCT USED FOR UNKNOWN INDICATION
     Dates: end: 201310
  11. ZOLOFT [Concomitant]
     Indication: PRODUCT USED FOR UNKNOWN INDICATION
     Dates: start: 201310
  12. DILAUDID [Concomitant]
     Indication: PAIN
     Dates: end: 201401

REACTIONS (25)
  - Chronic obstructive pulmonary disease [Unknown]
  - Asthma [Unknown]
  - Respiratory disorder [Not Recovered/Not Resolved]
  - Investigation [Not Recovered/Not Resolved]
  - Investigation [Not Recovered/Not Resolved]
  - Investigation [Not Recovered/Not Resolved]
  - Investigation [Not Recovered/Not Resolved]
  - Investigation [Not Recovered/Not Resolved]
  - Investigation [Not Recovered/Not Resolved]
  - Investigation [Not Recovered/Not Resolved]
  - Investigation [Not Recovered/Not Resolved]
  - Investigation [Not Recovered/Not Resolved]
  - Investigation [Not Recovered/Not Resolved]
  - Investigation [Not Recovered/Not Resolved]
  - Investigation [Not Recovered/Not Resolved]
  - Anxiety [Unknown]
  - Malaise [Unknown]
  - Cough [Unknown]
  - Respiratory disorder [Unknown]
  - Pain [Unknown]
  - Pain in extremity [Unknown]
  - Burning sensation [Unknown]
  - Bacterial test positive [Unknown]
  - Nausea [Unknown]
  - Cold sweat [Unknown]
